FAERS Safety Report 7418898-1 (Version None)
Quarter: 2011Q2

REPORT INFORMATION
  Report Type: 
  Country: None (occurrence: None)
  Receive Date: 20110415
  Receipt Date: 20110405
  Transmission Date: 20111010
  Serious: Yes (Other)
  Sender: FDA-Public Use
  Company Number: US-BAYER-2011-006342

PATIENT
  Age: 31 Year
  Sex: Female
  Weight: 58.05 kg

DRUGS (1)
  1. MIRENA [Suspect]
     Indication: CONTRACEPTION
     Dosage: 20 ?G, CONT
     Route: 015
     Dates: start: 20050101, end: 20101101

REACTIONS (4)
  - ABDOMINAL PAIN [None]
  - DEVICE DISLOCATION [None]
  - PROCEDURAL PAIN [None]
  - STRESS [None]
